FAERS Safety Report 20174592 (Version 1)
Quarter: 2021Q4

REPORT INFORMATION
  Report Type: Spontaneous
  Country: FR (occurrence: FR)
  Receive Date: 20211213
  Receipt Date: 20211213
  Transmission Date: 20220303
  Serious: Yes (Hospitalization, Other)
  Sender: FDA-Public Use
  Company Number: FR-UCBSA-2021057204

PATIENT
  Age: 68 Year
  Sex: Female

DRUGS (8)
  1. KEPPRA [Suspect]
     Active Substance: LEVETIRACETAM
     Indication: Product used for unknown indication
     Dosage: 250 MILLIGRAM, UNK
     Route: 048
  2. BISACODYL [Concomitant]
     Active Substance: BISACODYL
     Indication: Product used for unknown indication
     Dosage: UNK
  3. POLYETHYLENE GLYCOLS [Concomitant]
     Active Substance: POLYETHYLENE GLYCOLS
     Indication: Product used for unknown indication
     Dosage: UNK
  4. POLYETHYLENE GLYCOLS [Concomitant]
     Active Substance: POLYETHYLENE GLYCOLS
     Indication: Product used for unknown indication
     Dosage: UNK
  5. POTASSIUM [Concomitant]
     Active Substance: POTASSIUM
     Indication: Product used for unknown indication
     Dosage: UNK
  6. PHOSPHORE [POTASSIUM BICARBONATE;SODIUM BICARBONATE;SODIUM PHOSPHATE D [Concomitant]
     Indication: Product used for unknown indication
     Dosage: UNK
  7. COVID-19 VACCINE NOS [Concomitant]
     Active Substance: COVID-19 VACCINE NOS
     Indication: Product used for unknown indication
     Dosage: UNK
  8. INFLUENZA VIRUS VACCINE [Concomitant]
     Active Substance: INFLUENZA VIRUS VACCINE
     Indication: Product used for unknown indication
     Dosage: UNK

REACTIONS (4)
  - Fibrin D dimer increased [Unknown]
  - Thrombosis [Unknown]
  - Osteoporosis [Unknown]
  - COVID-19 immunisation [Unknown]

NARRATIVE: CASE EVENT DATE: 20210701
